FAERS Safety Report 16682900 (Version 1)
Quarter: 2019Q3

REPORT INFORMATION
  Report Type: Spontaneous
  Country: US (occurrence: US)
  Receive Date: 20190808
  Receipt Date: 20190808
  Transmission Date: 20191004
  Serious: No
  Sender: FDA-Public Use
  Company Number: US-APOTEX-2019AP018399

PATIENT

DRUGS (1)
  1. FLUTICASONE PROPIONATE. [Suspect]
     Active Substance: FLUTICASONE PROPIONATE
     Indication: PRODUCT USED FOR UNKNOWN INDICATION
     Dosage: UNK UNK, QD (2 SPRAYS ON EACH NOSTRIL ONCE A DAY)
     Route: 065

REACTIONS (4)
  - Photophobia [Unknown]
  - Vision blurred [Unknown]
  - Thinking abnormal [Unknown]
  - Headache [Unknown]
